FAERS Safety Report 4325833-1 (Version None)
Quarter: 2004Q1

REPORT INFORMATION
  Report Type: 
  Country: None (occurrence: None)
  Receive Date: 20040324
  Receipt Date: 20040308
  Transmission Date: 20041129
  Serious: Yes (Other)
  Sender: FDA-Public Use
  Company Number: USA040361327

PATIENT
  Age: 68 Year
  Sex: Female

DRUGS (9)
  1. FORTEO [Suspect]
     Indication: OSTEOPOROSIS
     Dates: start: 20040129, end: 20040308
  2. FIORICET [Concomitant]
  3. ELAVIL [Concomitant]
  4. FIBROMYALGIA [Concomitant]
  5. MECLIZINE [Concomitant]
  6. ACTONEL [Concomitant]
  7. FOSAMAX [Concomitant]
  8. PRILOSEC [Concomitant]
  9. NEXIUM [Concomitant]

REACTIONS (7)
  - ARTHRALGIA [None]
  - BACK PAIN [None]
  - HEADACHE [None]
  - LOSS OF CONSCIOUSNESS [None]
  - MUSCLE CRAMP [None]
  - NAUSEA [None]
  - VERTIGO [None]
